FAERS Safety Report 16246180 (Version 4)
Quarter: 2019Q4

REPORT INFORMATION
  Report Type: Spontaneous
  Country: US (occurrence: US)
  Receive Date: 20190426
  Receipt Date: 20191121
  Transmission Date: 20200122
  Serious: Yes (Death, Other)
  Sender: FDA-Public Use
  Company Number: US-SHIRE-US201912976

PATIENT
  Age: 22 Year
  Sex: Female
  Weight: 49.89 kg

DRUGS (3)
  1. GATTEX [Suspect]
     Active Substance: TEDUGLUTIDE\WATER
     Dosage: UNK, UNKNOWN
     Route: 058
     Dates: start: 20170921, end: 201806
  2. GATTEX [Suspect]
     Active Substance: TEDUGLUTIDE\WATER
     Dosage: 2.9 UNK
     Route: 058
     Dates: start: 20170809
  3. GATTEX [Suspect]
     Active Substance: TEDUGLUTIDE\WATER
     Indication: SHORT-BOWEL SYNDROME
     Dosage: UNK, UNKNOWN
     Route: 058
     Dates: start: 20170724

REACTIONS (3)
  - Respiratory failure [Unknown]
  - Inability to afford medication [Unknown]
  - Aspiration [Unknown]

NARRATIVE: CASE EVENT DATE: 201810
